FAERS Safety Report 14165713 (Version 1)
Quarter: 2017Q4

REPORT INFORMATION
  Report Type: Spontaneous
  Country: DE (occurrence: DE)
  Receive Date: 20171107
  Receipt Date: 20171107
  Transmission Date: 20180321
  Serious: Yes (Hospitalization)
  Sender: FDA-Public Use
  Company Number: DE-SA-2017SA210103

PATIENT
  Sex: Male
  Weight: 2.4 kg

DRUGS (1)
  1. LEMTRADA [Suspect]
     Active Substance: ALEMTUZUMAB
     Indication: MULTIPLE SCLEROSIS
     Route: 064
     Dates: start: 20150914

REACTIONS (3)
  - Respiratory disorder [Unknown]
  - Foetal exposure timing unspecified [Unknown]
  - Premature baby [Unknown]

NARRATIVE: CASE EVENT DATE: 201703
